FAERS Safety Report 5321196-3 (Version None)
Quarter: 2007Q1

REPORT INFORMATION
  Report Type: 
  Country: None (occurrence: None)
  Receive Date: 20070215
  Receipt Date: 20061108
  Transmission Date: 20070707
  Serious: Yes (Other)
  Sender: FDA-Public Use
  Company Number: 2006BH014508

PATIENT
  Age: 31 Year
  Sex: Female

DRUGS (1)
  1. EXTRANEAL [Suspect]
     Indication: DIABETIC NEPHROPATHY
     Dosage: IP
     Dates: start: 20060729

REACTIONS (3)
  - CATHETER RELATED INFECTION [None]
  - PRURITUS [None]
  - RASH GENERALISED [None]
